FAERS Safety Report 16113970 (Version 1)
Quarter: 2019Q1

REPORT INFORMATION
  Report Type: Spontaneous
  Country: US (occurrence: US)
  Receive Date: 20190325
  Receipt Date: 20190325
  Transmission Date: 20190418
  Serious: No
  Sender: FDA-Public Use
  Company Number: US-ALLERGAN-1824552US

PATIENT
  Sex: Female

DRUGS (3)
  1. ACZONE [Concomitant]
     Active Substance: DAPSONE
     Indication: ACNE
     Dosage: UNK UNK, PRN
     Route: 061
  2. LATISSE [Suspect]
     Active Substance: BIMATOPROST
     Indication: GROWTH OF EYELASHES
     Dosage: 1 GTT, QPM
     Route: 061
     Dates: start: 20171125
  3. LATISSE [Suspect]
     Active Substance: BIMATOPROST
     Dosage: UNK
     Route: 061

REACTIONS (1)
  - Madarosis [Not Recovered/Not Resolved]
